FAERS Safety Report 23994146 (Version 1)
Quarter: 2024Q2

REPORT INFORMATION
  Report Type: Spontaneous
  Country: US (occurrence: None)
  Receive Date: 20240618
  Receipt Date: 20240618
  Transmission Date: 20240716
  Serious: Yes (Hospitalization)
  Sender: FDA-Public Use
  Company Number: None

PATIENT
  Sex: Female

DRUGS (2)
  1. OPSUMIT [Suspect]
     Active Substance: MACITENTAN
     Indication: Pulmonary arterial hypertension
     Dosage: 10MG DAILY PO
     Route: 048
     Dates: start: 202406
  2. TYVASO DPI TITRAT KIT POW [Concomitant]

REACTIONS (3)
  - Acute respiratory distress syndrome [None]
  - Oxygen saturation decreased [None]
  - Intentional dose omission [None]
